FAERS Safety Report 10056805 (Version 1)
Quarter: 2014Q2

REPORT INFORMATION
  Report Type: Spontaneous
  Country: GB (occurrence: GB)
  Receive Date: 20140403
  Receipt Date: 20140403
  Transmission Date: 20141212
  Serious: Yes (Life-Threatening)
  Sender: FDA-Public Use
  Company Number: GB-WATSON-2014-06109

PATIENT
  Age: 18 Year
  Sex: Female
  Weight: 82 kg

DRUGS (6)
  1. ONDANSETRON HYDROCHLORIDE (UNKNOWN) [Suspect]
     Indication: INDUCTION OF ANAESTHESIA
     Dosage: 4 MG, UNK
     Route: 042
     Dates: start: 20121102, end: 20121102
  2. FENTANYL (UNKNOWN) [Suspect]
     Indication: INDUCTION OF ANAESTHESIA
     Dosage: 150 ?G, UNK
     Route: 042
     Dates: start: 20121102, end: 20121102
  3. DIPRIVAN [Suspect]
     Indication: INDUCTION OF ANAESTHESIA
     Dosage: 200 MG, UNK
     Route: 042
     Dates: start: 20121102, end: 20121102
  4. NORCURON [Suspect]
     Indication: INDUCTION OF ANAESTHESIA
     Dosage: 6 MG, UNK
     Route: 042
     Dates: start: 20121102, end: 20121102
  5. OXYGEN [Concomitant]
     Indication: PRODUCT USED FOR UNKNOWN INDICATION
     Dosage: UNK
     Route: 065
  6. SEVOFLURANE [Concomitant]
     Indication: PRODUCT USED FOR UNKNOWN INDICATION
     Dosage: UNK
     Route: 065

REACTIONS (2)
  - Bronchospasm [Recovered/Resolved]
  - Oxygen saturation decreased [Recovered/Resolved]
